FAERS Safety Report 10226589 (Version 2)
Quarter: 2014Q2

REPORT INFORMATION
  Report Type: Spontaneous
  Country: US (occurrence: US)
  Receive Date: 20140609
  Receipt Date: 20140609
  Transmission Date: 20141212
  Serious: No
  Sender: FDA-Public Use
  Company Number: US-AMGEN INC.-USASP2014021650

PATIENT
  Age: 84 Year
  Sex: Female
  Weight: 77.1 kg

DRUGS (1)
  1. PROCRIT [Suspect]
     Indication: HAEMOGLOBIN ABNORMAL
     Dosage: 20000 UNIT, ONCE EVERY 2 WEEKS AND SOMETIMES USED IT WEEKLY
     Route: 065

REACTIONS (1)
  - Haemoglobin decreased [Unknown]
